FAERS Safety Report 6026465-X (Version None)
Quarter: 2009Q1

REPORT INFORMATION
  Report Type: 
  Country: None (occurrence: None)
  Receive Date: 20090102
  Receipt Date: 20081226
  Transmission Date: 20090719
  Serious: Yes (Other)
  Sender: FDA-Public Use
  Company Number: US-BAYER-200814981BCC

PATIENT
  Age: 16 Year
  Sex: Male
  Weight: 91 kg

DRUGS (1)
  1. ALEVE [Suspect]
     Indication: PYREXIA
     Dates: start: 20081224, end: 20081225

REACTIONS (2)
  - COUGH [None]
  - HAEMOPTYSIS [None]
